FAERS Safety Report 25932749 (Version 1)
Quarter: 2025Q4

REPORT INFORMATION
  Report Type: Spontaneous
  Country: US (occurrence: US)
  Receive Date: 20251017
  Receipt Date: 20251017
  Transmission Date: 20260117
  Serious: No
  Sender: SANDOZ
  Company Number: US-SANDOZ-SDZ2025US076186

PATIENT
  Sex: Female

DRUGS (1)
  1. ESTRADIOL [Suspect]
     Active Substance: ESTRADIOL
     Indication: Product used for unknown indication
     Dosage: UNK, Q2MO (ESTRADIOL 0.0375MG/24H 8TTS V1  US)
     Route: 062

REACTIONS (2)
  - Poor quality product administered [Unknown]
  - Device adhesion issue [Unknown]
